FAERS Safety Report 9424126 (Version 2)
Quarter: 2013Q3

REPORT INFORMATION
  Report Type: Spontaneous
  Country: IL (occurrence: IL)
  Receive Date: 20130729
  Receipt Date: 20130826
  Transmission Date: 20140515
  Serious: Yes (Hospitalization)
  Sender: FDA-Public Use
  Company Number: IL-SHIRE-ALL1-2013-05039

PATIENT
  Sex: Female

DRUGS (2)
  1. VPRIV [Suspect]
     Indication: PRODUCT USED FOR UNKNOWN INDICATION
     Dosage: UNK, UNKNOWN
     Route: 041
     Dates: start: 20130210
  2. VPRIV [Suspect]
     Dosage: UNK, UNKNOWN
     Route: 041

REACTIONS (4)
  - Pericarditis [Unknown]
  - Dyspnoea [Unknown]
  - Rash [Unknown]
  - Malaise [Unknown]
